FAERS Safety Report 19555249 (Version 2)
Quarter: 2023Q1

REPORT INFORMATION
  Report Type: Spontaneous
  Country: CA (occurrence: CA)
  Receive Date: 20210715
  Receipt Date: 20230214
  Transmission Date: 20230418
  Serious: Yes (Hospitalization, Other)
  Sender: FDA-Public Use
  Company Number: CA-NOVARTISPH-NVSC2021CA153479

PATIENT
  Age: 30 Year
  Sex: Male

DRUGS (21)
  1. EZETIMIBE [Suspect]
     Active Substance: EZETIMIBE
     Indication: Low density lipoprotein abnormal
     Dosage: UNK
     Route: 065
  2. PRAVASTATIN SODIUM [Suspect]
     Active Substance: PRAVASTATIN SODIUM
     Indication: Low density lipoprotein abnormal
     Dosage: UNK
     Route: 065
  3. LESCOL [Suspect]
     Active Substance: FLUVASTATIN SODIUM
     Indication: Low density lipoprotein
     Dosage: UNK
     Route: 065
  4. ROSUVASTATIN CALCIUM [Suspect]
     Active Substance: ROSUVASTATIN CALCIUM
     Indication: Low density lipoprotein abnormal
     Dosage: UNK
     Route: 048
  5. ROSUVASTATIN CALCIUM [Suspect]
     Active Substance: ROSUVASTATIN CALCIUM
     Dosage: UNK
     Route: 065
  6. FLUVASTATIN SODIUM [Suspect]
     Active Substance: FLUVASTATIN SODIUM
     Indication: Low density lipoprotein abnormal
     Dosage: UNK
     Route: 065
  7. FLUVASTATIN SODIUM [Suspect]
     Active Substance: FLUVASTATIN SODIUM
     Dosage: UNK
     Route: 065
  8. CRESTOR [Suspect]
     Active Substance: ROSUVASTATIN CALCIUM
     Indication: Low density lipoprotein
     Dosage: UNK
     Route: 065
  9. JUXTAPID [Suspect]
     Active Substance: LOMITAPIDE MESYLATE
     Indication: Low density lipoprotein
     Dosage: UNK
     Route: 065
  10. LIPITOR [Suspect]
     Active Substance: ATORVASTATIN CALCIUM
     Indication: Low density lipoprotein abnormal
     Dosage: UNK
     Route: 065
  11. COLESEVELAM HYDROCHLORIDE [Suspect]
     Active Substance: COLESEVELAM HYDROCHLORIDE
     Indication: Low density lipoprotein abnormal
     Dosage: UNK
     Route: 065
  12. COLESEVELAM HYDROCHLORIDE [Suspect]
     Active Substance: COLESEVELAM HYDROCHLORIDE
     Dosage: UNK
     Route: 065
  13. MEVACOR [Suspect]
     Active Substance: LOVASTATIN
     Indication: Low density lipoprotein abnormal
     Dosage: UNK
     Route: 065
  14. NIACIN [Suspect]
     Active Substance: NIACIN
     Indication: Low density lipoprotein abnormal
     Dosage: UNK
     Route: 065
  15. CHOLESTYRAMINE [Suspect]
     Active Substance: CHOLESTYRAMINE
     Indication: Low density lipoprotein abnormal
     Dosage: UNK
     Route: 065
  16. PRALUENT [Suspect]
     Active Substance: ALIROCUMAB
     Indication: Low density lipoprotein abnormal
     Dosage: UNK
     Route: 058
  17. REPATHA [Suspect]
     Active Substance: EVOLOCUMAB
     Indication: Low density lipoprotein abnormal
     Dosage: 1 ML (SINGLE USE, AUTOINJECTOR)
     Route: 058
  18. VASCEPA [Suspect]
     Active Substance: ICOSAPENT ETHYL
     Indication: Low density lipoprotein
     Dosage: UNK
     Route: 065
  19. ZOCOR [Suspect]
     Active Substance: SIMVASTATIN
     Indication: Low density lipoprotein abnormal
     Dosage: UNK
     Route: 065
  20. LOMITAPIDE MESYLATE [Suspect]
     Active Substance: LOMITAPIDE MESYLATE
     Indication: Low density lipoprotein abnormal
     Dosage: UNK
     Route: 065
  21. ICOSAPENT ETHYL [Suspect]
     Active Substance: ICOSAPENT ETHYL
     Indication: Low density lipoprotein abnormal
     Dosage: UNK
     Route: 065

REACTIONS (3)
  - Cerebrovascular accident [Unknown]
  - Myocardial infarction [Unknown]
  - Drug ineffective [Unknown]
